FAERS Safety Report 4621574-1 (Version None)
Quarter: 2005Q1

REPORT INFORMATION
  Report Type: 
  Country: None (occurrence: None)
  Receive Date: 20050328
  Receipt Date: 20050315
  Transmission Date: 20050727
  Serious: Yes (Hospitalization)
  Sender: FDA-Public Use
  Company Number: 6013716

PATIENT
  Age: 1 Day
  Sex: Female

DRUGS (3)
  1. PINDOLOL [Suspect]
     Dosage: 10 MG (5 MG, 1 IN 1 D), TRANSPLACENTAL
     Route: 064
     Dates: start: 20040305, end: 20040307
  2. ADALAT [Suspect]
     Dosage: SEE IMAGE
     Route: 064
     Dates: start: 20040304, end: 20040306
  3. ADALAT [Suspect]
     Dosage: SEE IMAGE
     Route: 064
     Dates: start: 20040307, end: 20040307

REACTIONS (9)
  - BLOOD GLUCOSE DECREASED [None]
  - DRUG EXPOSURE DURING PREGNANCY [None]
  - LABOUR INDUCTION [None]
  - NEONATAL PNEUMONIA [None]
  - NEONATAL RESPIRATORY FAILURE [None]
  - OXYGEN SATURATION DECREASED [None]
  - PNEUMOTHORAX [None]
  - PULMONARY HYPERTENSION [None]
  - SEPSIS NEONATAL [None]
